FAERS Safety Report 6050353-6 (Version None)
Quarter: 2009Q1

REPORT INFORMATION
  Report Type: 
  Country: None (occurrence: None)
  Receive Date: 20090121
  Receipt Date: 20090113
  Transmission Date: 20090719
  Serious: No
  Sender: FDA-Public Use
  Company Number: TPA2008A01004

PATIENT
  Age: 71 Year
  Sex: Male
  Weight: 102.0593 kg

DRUGS (1)
  1. ACTOS [Suspect]
     Indication: TYPE 2 DIABETES MELLITUS
     Dosage: 30 MG, QD, PER ORAL
     Route: 048
     Dates: start: 20040101

REACTIONS (3)
  - TOOTH ABSCESS [None]
  - TOOTH DISORDER [None]
  - TOOTH LOSS [None]
